FAERS Safety Report 9452588 (Version 1)
Quarter: 2013Q3

REPORT INFORMATION
  Report Type: Spontaneous
  Country: US (occurrence: US)
  Receive Date: 20130812
  Receipt Date: 20130812
  Transmission Date: 20140515
  Serious: No
  Sender: FDA-Public Use
  Company Number: US-PFIZER INC-2013233030

PATIENT
  Age: 70 Year
  Sex: Female
  Weight: 63.49 kg

DRUGS (2)
  1. LYRICA [Suspect]
     Indication: FIBROMYALGIA
     Dosage: 150 MG, UNK
     Route: 048
     Dates: end: 201012
  2. CYMBALTA [Concomitant]
     Dosage: UNK

REACTIONS (1)
  - Pain [Unknown]
